FAERS Safety Report 7281775-3 (Version None)
Quarter: 2011Q1

REPORT INFORMATION
  Report Type: 
  Country: None (occurrence: None)
  Receive Date: 20110208
  Receipt Date: 20100730
  Transmission Date: 20110831
  Serious: No
  Sender: FDA-Public Use
  Company Number: US-PFIZER INC-2010060608

PATIENT
  Sex: Female
  Weight: 75 kg

DRUGS (2)
  1. SUTENT [Suspect]
     Indication: BONE NEOPLASM MALIGNANT
  2. SUTENT [Suspect]
     Indication: RENAL CANCER STAGE IV
     Dosage: 50 MG, UNK
     Route: 048
     Dates: start: 20081201

REACTIONS (2)
  - DISEASE PROGRESSION [None]
  - RENAL CELL CARCINOMA [None]
